FAERS Safety Report 7475549-8 (Version None)
Quarter: 2011Q2

REPORT INFORMATION
  Report Type: 
  Country: None (occurrence: None)
  Receive Date: 20110512
  Receipt Date: 20110506
  Transmission Date: 20111010
  Serious: Yes (Death, Other)
  Sender: FDA-Public Use
  Company Number: PHHY2011AU14693

PATIENT

DRUGS (3)
  1. CLOZAPINE [Suspect]
     Indication: SCHIZOPHRENIA
     Dosage: 300 MG, QD
  2. BENZTROPINE [Concomitant]
  3. LACTULOSE [Concomitant]

REACTIONS (2)
  - ASTHMA [None]
  - MYOCARDITIS [None]
